FAERS Safety Report 9814378 (Version 3)
Quarter: 2014Q1

REPORT INFORMATION
  Report Type: Spontaneous
  Country: JP (occurrence: JP)
  Receive Date: 20140113
  Receipt Date: 20140206
  Transmission Date: 20141002
  Serious: Yes (Hospitalization)
  Sender: FDA-Public Use
  Company Number: PHHY2014JP002794

PATIENT
  Age: 81 Year
  Sex: Female

DRUGS (6)
  1. FAMVIR [Suspect]
     Indication: HERPES ZOSTER
     Dosage: 500 MG, QD
     Route: 048
     Dates: start: 20140101, end: 20140103
  2. RISPERDAL [Suspect]
     Indication: RESTLESSNESS
     Dosage: 5 MG, UNK
     Route: 048
     Dates: start: 20140102, end: 20140102
  3. ARASENA A [Concomitant]
     Indication: HERPES ZOSTER
     Dosage: 100 MG, QD
     Route: 041
     Dates: start: 20131227, end: 20131231
  4. LYRICA [Concomitant]
     Indication: HERPES ZOSTER
     Dosage: 25 MG, QD
     Route: 048
     Dates: start: 20131227, end: 20140103
  5. PREDONINE [Concomitant]
     Indication: HERPES ZOSTER
     Dosage: 15 MG, QD
     Route: 048
     Dates: start: 20131227, end: 20131231
  6. CALONAL [Concomitant]
     Indication: HERPES ZOSTER
     Dosage: 600 MG, QID
     Route: 048
     Dates: start: 20131227, end: 20140102

REACTIONS (1)
  - Altered state of consciousness [Recovered/Resolved]
